FAERS Safety Report 7101768-6 (Version None)
Quarter: 2010Q4

REPORT INFORMATION
  Report Type: 
  Country: None (occurrence: None)
  Receive Date: 20101115
  Receipt Date: 20101103
  Transmission Date: 20110411
  Serious: Yes (Other)
  Sender: FDA-Public Use
  Company Number: CN-TYCO HEALTHCARE/MALLINCKRODT-T201002240

PATIENT
  Age: 57 Year
  Sex: Female

DRUGS (1)
  1. SODIUM IODIDE I 131 [Suspect]
     Indication: HYPERTHYROIDISM
     Dosage: 222 GBQ, UNK
     Dates: start: 20050101, end: 20050101

REACTIONS (2)
  - MYXOEDEMA [None]
  - SECONDARY HYPOTHYROIDISM [None]
